FAERS Safety Report 23944177 (Version 2)
Quarter: 2024Q2

REPORT INFORMATION
  Report Type: Spontaneous
  Country: DE (occurrence: DE)
  Receive Date: 20240606
  Receipt Date: 20240624
  Transmission Date: 20240716
  Serious: Yes (Hospitalization)
  Sender: FDA-Public Use
  Company Number: None

PATIENT
  Age: 37 Year
  Sex: Female

DRUGS (10)
  1. GABAPENTIN [Suspect]
     Active Substance: GABAPENTIN
     Indication: Self-destructive behaviour
     Dosage: UNK
     Route: 065
  2. GABAPENTIN [Suspect]
     Active Substance: GABAPENTIN
     Indication: Major depression
  3. LAMOTRIGINE [Suspect]
     Active Substance: LAMOTRIGINE
     Indication: Self-destructive behaviour
     Dosage: 150 MILLIGRAM, QD
     Route: 065
  4. LAMOTRIGINE [Suspect]
     Active Substance: LAMOTRIGINE
     Indication: Major depression
  5. CHLORPROTHIXENE [Interacting]
     Active Substance: CHLORPROTHIXENE
     Indication: Self-destructive behaviour
     Dosage: 450 MILLIGRAM, QD
     Route: 048
  6. CHLORPROTHIXENE [Interacting]
     Active Substance: CHLORPROTHIXENE
     Indication: Major depression
  7. AMITRIPTYLINE [Concomitant]
     Active Substance: AMITRIPTYLINE
     Indication: Self-destructive behaviour
     Dosage: 200 MILLIGRAM, QD
     Route: 065
  8. AMITRIPTYLINE [Concomitant]
     Active Substance: AMITRIPTYLINE
     Indication: Major depression
  9. FLUPENTIXOL [Concomitant]
     Active Substance: FLUPENTIXOL
     Indication: Self-destructive behaviour
     Dosage: UNK
     Route: 065
  10. FLUPENTIXOL [Concomitant]
     Active Substance: FLUPENTIXOL
     Indication: Major depression
     Dosage: UNK (DOSE DECREASED)
     Route: 065

REACTIONS (3)
  - Drug interaction [Unknown]
  - Somnolence [Unknown]
  - Drug ineffective [Unknown]
